FAERS Safety Report 21302246 (Version 1)
Quarter: 2022Q3

REPORT INFORMATION
  Report Type: Spontaneous
  Country: CN (occurrence: CN)
  Receive Date: 20220907
  Receipt Date: 20220907
  Transmission Date: 20221026
  Serious: Yes (Hospitalization, Other)
  Sender: FDA-Public Use
  Company Number: CN-HALEON-CNCH2022APC031873

PATIENT

DRUGS (1)
  1. IBUPROFEN [Suspect]
     Active Substance: IBUPROFEN
     Indication: Pain
     Dosage: 0.3 G, BID
     Route: 048
     Dates: start: 20220530, end: 20220620

REACTIONS (11)
  - Gastric ulcer perforation [Recovering/Resolving]
  - Septic shock [Recovering/Resolving]
  - Peritonitis [Recovering/Resolving]
  - Abdominal pain upper [Recovering/Resolving]
  - Pain [Recovering/Resolving]
  - Abdominal discomfort [Recovering/Resolving]
  - Perforation [Recovering/Resolving]
  - Malaise [Recovering/Resolving]
  - Gastrorrhaphy [Recovering/Resolving]
  - Explorative laparotomy [Recovering/Resolving]
  - Product use in unapproved indication [Unknown]

NARRATIVE: CASE EVENT DATE: 20220530
